FAERS Safety Report 4451221-3 (Version None)
Quarter: 2004Q3

REPORT INFORMATION
  Report Type: 
  Country: None (occurrence: None)
  Receive Date: 20040915
  Receipt Date: 20040915
  Transmission Date: 20050211
  Serious: Yes (Hospitalization)
  Sender: FDA-Public Use
  Company Number: None

PATIENT
  Sex: Male
  Weight: 51.7101 kg

DRUGS (1)
  1. THALOMID [Suspect]
     Indication: SMALL CELL LUNG CANCER STAGE UNSPECIFIED
     Dosage: 200 MG @ BEDTIME ORAL
     Dates: start: 20040508, end: 20040613

REACTIONS (1)
  - CONVULSION [None]
